FAERS Safety Report 6462160-0 (Version None)
Quarter: 2009Q4

REPORT INFORMATION
  Report Type: 
  Country: None (occurrence: None)
  Receive Date: 20091130
  Receipt Date: 20091118
  Transmission Date: 20100525
  Serious: Yes (Other)
  Sender: FDA-Public Use
  Company Number: US-BAYER-200916923BCC

PATIENT
  Age: 70 Year
  Sex: Female
  Weight: 68 kg

DRUGS (5)
  1. ASPIRIN [Suspect]
     Indication: ISCHAEMIC HEART DISEASE PROPHYLAXIS
     Dosage: TOTAL DAILY DOSE: 325 MG  UNIT DOSE: 325 MG
     Route: 048
     Dates: start: 20090801, end: 20091031
  2. LOVASTATIN [Concomitant]
     Route: 065
  3. UNKNOWN VITAMINS [Concomitant]
     Route: 065
  4. COSTCO ASPIRIN [Concomitant]
     Dosage: TOTAL DAILY DOSE: 81 MG  UNIT DOSE: 81 MG
     Route: 048
  5. COSTCO ASPIRIN [Concomitant]
     Dosage: TOTAL DAILY DOSE: 162 MG  UNIT DOSE: 81 MG
     Route: 048

REACTIONS (2)
  - GASTRIC HAEMORRHAGE [None]
  - HAEMATOCHEZIA [None]
